FAERS Safety Report 11400591 (Version 2)
Quarter: 2015Q3

REPORT INFORMATION
  Report Type: Spontaneous
  Country: US (occurrence: US)
  Receive Date: 20150820
  Receipt Date: 20150918
  Transmission Date: 20151125
  Serious: Yes (Other)
  Sender: FDA-Public Use
  Company Number: US-BAYER-2015-403693

PATIENT
  Age: 20 Year
  Sex: Female
  Weight: 77.98 kg

DRUGS (1)
  1. MIRENA [Suspect]
     Active Substance: LEVONORGESTREL
     Indication: CONTRACEPTION
     Dosage: 20 MCG/24HR, CONT
     Route: 015
     Dates: start: 20150629, end: 20150629

REACTIONS (3)
  - Embedded device [Recovered/Resolved]
  - Device difficult to use [None]
  - Complication of device insertion [None]

NARRATIVE: CASE EVENT DATE: 20150629
